FAERS Safety Report 14481977 (Version 1)
Quarter: 2018Q1

REPORT INFORMATION
  Report Type: Other
  Country: DE (occurrence: DE)
  Receive Date: 20180202
  Receipt Date: 20180202
  Transmission Date: 20180509
  Serious: Yes (Hospitalization)
  Sender: FDA-Public Use
  Company Number: DE-B. BRAUN MEDICAL INC.-2041307

PATIENT
  Age: 22 Month
  Sex: Male

DRUGS (1)
  1. 0.9% SODIUM CHLORIDE INJECTION USP 0264-1800-31 0264-1800-32 [Suspect]
     Active Substance: SODIUM CHLORIDE
     Route: 045

REACTIONS (1)
  - Aspergillus infection [None]
